FAERS Safety Report 7681943 (Version 4)
Quarter: 2012Q4

REPORT INFORMATION
  Report Type: 
  Country: JP (occurrence: JP)
  Receive Date: 20101124
  Receipt Date: 20120912
  Transmission Date: 20130627
  Serious: Yes (Death, Other)
  Sender: FDA-Public Use
  Company Number: PHHY2010JP77878

PATIENT
  Age: 45 Year
  Sex: Male
  Weight: 78 kg

DRUGS (6)
  1. EXJADE [Suspect]
     Indication: IRON OVERLOAD
     Dosage: 1500 mg, QD
     Route: 048
     Dates: start: 20090625
  2. ALESION [Concomitant]
     Indication: PROPHYLAXIS
     Dosage: 20 mg, QD
     Route: 048
     Dates: start: 20090625
  3. PREDONINE [Concomitant]
     Indication: PROPHYLAXIS
     Dosage: 0.5 mg, QD
     Route: 048
     Dates: start: 20090625
  4. ITRIZOLE [Concomitant]
     Indication: PROPHYLAXIS
     Dosage: 200 mg, QD
     Route: 048
     Dates: start: 20090625
  5. BAKTAR [Concomitant]
     Indication: PROPHYLAXIS
     Dosage: 01 DF, UNK
     Route: 048
     Dates: start: 20090625
  6. TAKEPRON [Concomitant]
     Indication: PROPHYLAXIS AGAINST GASTROINTESTINAL ULCER
     Dosage: 30 mg, QD
     Route: 048
     Dates: start: 20090625

REACTIONS (4)
  - Sudden death [Fatal]
  - Pancreatic pseudocyst [Not Recovered/Not Resolved]
  - Pancreatitis acute [Recovering/Resolving]
  - Hepatic function abnormal [Recovering/Resolving]
